FAERS Safety Report 21312431 (Version 1)
Quarter: 2022Q3

REPORT INFORMATION
  Report Type: Spontaneous
  Country: US (occurrence: None)
  Receive Date: 20220909
  Receipt Date: 20220909
  Transmission Date: 20221026
  Serious: No
  Sender: FDA-Public Use
  Company Number: US-ARIS GLOBAL-202206-1052

PATIENT
  Sex: Female

DRUGS (23)
  1. OXERVATE [Suspect]
     Active Substance: CENEGERMIN-BKBJ
     Indication: Neurotrophic keratopathy
     Route: 047
     Dates: start: 20220531
  2. BACOPA [Concomitant]
  3. AZASITE [Concomitant]
     Active Substance: AZITHROMYCIN MONOHYDRATE
  4. REFRESH CELLUVISC [Concomitant]
     Active Substance: CARBOXYMETHYLCELLULOSE SODIUM
     Dosage: DROPS GEL
  5. MURO-128 [Concomitant]
  6. MURO-128 [Concomitant]
  7. VALTREX [Concomitant]
     Active Substance: VALACYCLOVIR HYDROCHLORIDE
  8. IBUPROFEN [Concomitant]
     Active Substance: IBUPROFEN
  9. OMEGA 3 [Concomitant]
     Active Substance: CAPSAICIN
     Dosage: 684-1200MG
  10. VITAMIN D3 [Concomitant]
     Active Substance: CHOLECALCIFEROL
  11. IRON [Concomitant]
     Active Substance: IRON
     Dosage: 236(27)MG
  12. ZINC [Concomitant]
     Active Substance: ZINC
  13. PROBIOTICS NOS [Concomitant]
     Active Substance: PROBIOTICS NOS
     Dosage: 10 BILLION CELL
  14. VITAMIN C [Concomitant]
     Active Substance: ASCORBIC ACID
  15. QUERCETIN DIHYDRATE [Concomitant]
     Active Substance: QUERCETIN DIHYDRATE
  16. NAC [Concomitant]
  17. MAGNESIUM [Concomitant]
     Active Substance: MAGNESIUM
  18. ADERALL XR [Concomitant]
     Dosage: SUSTAINED RELEASE FOR 24 HOURS
  19. NALTREXONE HYDROCHLORIDE [Concomitant]
     Active Substance: NALTREXONE HYDROCHLORIDE
  20. PROGESTERONE [Concomitant]
     Active Substance: PROGESTERONE
  21. XIIDRA [Concomitant]
     Active Substance: LIFITEGRAST
  22. AVENOCA OR CLARITY-A [Concomitant]
     Dosage: DROPS FOR EXTRA LUBRICATION
  23. COLLOIDAL SILVER [Concomitant]
     Active Substance: SILVER

REACTIONS (3)
  - Device difficult to use [Unknown]
  - Periorbital pain [Unknown]
  - Eye pain [Unknown]
